FAERS Safety Report 9419917 (Version 2)
Quarter: 2013Q3

REPORT INFORMATION
  Report Type: Spontaneous
  Country: US (occurrence: US)
  Receive Date: 20130725
  Receipt Date: 20130825
  Transmission Date: 20140515
  Serious: No
  Sender: FDA-Public Use
  Company Number: US-009507513-1307USA013609

PATIENT
  Age: 18 Year
  Sex: Female
  Weight: 97.87 kg

DRUGS (13)
  1. NEXPLANON [Suspect]
     Indication: CONTRACEPTION
     Dosage: 1 ROD
     Route: 059
     Dates: start: 20130703, end: 20130717
  2. PROAIR (ALBUTEROL SULFATE) [Concomitant]
  3. PRILOSEC [Concomitant]
     Route: 048
  4. DESMOPRESSIN [Concomitant]
  5. CLARITIN [Concomitant]
     Route: 048
  6. ABILIFY [Concomitant]
  7. BENTYL [Concomitant]
  8. QUESTRAN [Concomitant]
  9. PHENERGAN (PROMETHAZINE HYDROCHLORIDE) [Concomitant]
  10. ANAPROX [Concomitant]
  11. LOTRISONE [Concomitant]
  12. TRAMADOL HYDROCHLORIDE [Concomitant]
  13. LORATAB [Concomitant]

REACTIONS (3)
  - Implant site pain [Recovered/Resolved]
  - Application site discomfort [Recovered/Resolved]
  - Device breakage [Recovered/Resolved]
